FAERS Safety Report 16343164 (Version 1)
Quarter: 2019Q2

REPORT INFORMATION
  Report Type: Spontaneous
  Country: US (occurrence: US)
  Receive Date: 20190521
  Receipt Date: 20190521
  Transmission Date: 20190711
  Serious: Yes (Hospitalization)
  Sender: FDA-Public Use
  Company Number: None

PATIENT
  Sex: Female

DRUGS (2)
  1. NEULASTA [Suspect]
     Active Substance: PEGFILGRASTIM
     Indication: AGRANULOCYTOSIS
     Dosage: ?          OTHER FREQUENCY:24HRS AFTER CHEMO;?
     Route: 058
     Dates: start: 20190314
  2. NO MED LIST AVAILABLE [Concomitant]

REACTIONS (3)
  - Tumour rupture [None]
  - Tracheal disorder [None]
  - Haemoptysis [None]
